FAERS Safety Report 10695838 (Version 1)
Quarter: 2015Q1

REPORT INFORMATION
  Report Type: Spontaneous
  Country: US (occurrence: None)
  Receive Date: 20150106
  Receipt Date: 20150106
  Transmission Date: 20150721
  Serious: Yes (Hospitalization)
  Sender: FDA-Public Use
  Company Number: None

PATIENT
  Age: 63 Year
  Sex: Female
  Weight: 95.2 kg

DRUGS (1)
  1. GLIPIZIDE. [Suspect]
     Active Substance: GLIPIZIDE
     Indication: DIABETES MELLITUS
     Dosage: MG
     Route: 048
     Dates: start: 20140724, end: 20140917

REACTIONS (6)
  - Toxicity to various agents [None]
  - Acute kidney injury [None]
  - Treatment noncompliance [None]
  - Blood glucose fluctuation [None]
  - Accidental overdose [None]
  - Hypoglycaemia [None]

NARRATIVE: CASE EVENT DATE: 20140910
